FAERS Safety Report 8037405-6 (Version None)
Quarter: 2012Q1

REPORT INFORMATION
  Report Type: 
  Country: None (occurrence: None)
  Receive Date: 20120105
  Receipt Date: 20111223
  Transmission Date: 20120608
  Serious: Yes (Hospitalization)
  Sender: FDA-Public Use
  Company Number: 2011SP039777

PATIENT
  Age: 66 Year
  Sex: Male
  Weight: 62.8 kg

DRUGS (13)
  1. PREDNISOLONE [Concomitant]
  2. GLIMEPIRIDE [Concomitant]
  3. TEMOZOLOMIDE [Suspect]
     Indication: GLIOBLASTOMA
     Dosage: 120 MG;QD;PO 250 MG;QD;PO 340 MG;QD;PO
     Route: 048
     Dates: start: 20090428, end: 20090502
  4. TEMOZOLOMIDE [Suspect]
     Indication: GLIOBLASTOMA
     Dosage: 120 MG;QD;PO 250 MG;QD;PO 340 MG;QD;PO
     Route: 048
     Dates: start: 20090623, end: 20090627
  5. TEMOZOLOMIDE [Suspect]
     Indication: GLIOBLASTOMA
     Dosage: 120 MG;QD;PO 250 MG;QD;PO 340 MG;QD;PO
     Route: 048
     Dates: start: 20090720, end: 20090725
  6. TEMOZOLOMIDE [Suspect]
     Indication: GLIOBLASTOMA
     Dosage: 120 MG;QD;PO 250 MG;QD;PO 340 MG;QD;PO
     Route: 048
     Dates: start: 20090204, end: 20090317
  7. TEMOZOLOMIDE [Suspect]
     Indication: GLIOBLASTOMA
     Dosage: 120 MG;QD;PO 250 MG;QD;PO 340 MG;QD;PO
     Route: 048
     Dates: start: 20090526, end: 20090530
  8. TEMOZOLOMIDE [Suspect]
     Indication: GLIOBLASTOMA
     Dosage: 120 MG;QD;PO 250 MG;QD;PO 340 MG;QD;PO
     Route: 048
     Dates: start: 20090915, end: 20090919
  9. TEMOZOLOMIDE [Suspect]
     Indication: GLIOBLASTOMA
     Dosage: 120 MG;QD;PO 250 MG;QD;PO 340 MG;QD;PO
     Route: 048
     Dates: start: 20090818, end: 20090822
  10. DONEPEZIL HCL [Concomitant]
  11. L-CARNITINE [Concomitant]
  12. TAMSULOISIN [Concomitant]
  13. VALPROATE SODIUM [Concomitant]

REACTIONS (2)
  - LOBAR PNEUMONIA [None]
  - URINARY TRACT INFECTION [None]
